FAERS Safety Report 5133636-3 (Version None)
Quarter: 2006Q4

REPORT INFORMATION
  Report Type: 
  Country: None (occurrence: None)
  Receive Date: 20061024
  Receipt Date: 20061017
  Transmission Date: 20070319
  Serious: Yes (Life-Threatening, Hospitalization)
  Sender: FDA-Public Use
  Company Number: FR-AVENTIS-200613642FR

PATIENT
  Age: 53 Year
  Sex: Male
  Weight: 75 kg

DRUGS (3)
  1. ARAVA [Suspect]
     Indication: RHEUMATOID ARTHRITIS
     Route: 048
  2. AUGMENTIN                          /00756801/ [Concomitant]
     Route: 048
     Dates: start: 20060830, end: 20060909
  3. CORGARD [Concomitant]
     Route: 048

REACTIONS (7)
  - BLOOD CREATINE PHOSPHOKINASE INCREASED [None]
  - BLOOD CREATININE INCREASED [None]
  - BRADYCARDIA [None]
  - CHEST PAIN [None]
  - DILATATION VENTRICULAR [None]
  - MYOCARDIAL INFARCTION [None]
  - TROPONIN INCREASED [None]
